FAERS Safety Report 5840257-3 (Version None)
Quarter: 2008Q3

REPORT INFORMATION
  Report Type: 
  Country: None (occurrence: None)
  Receive Date: 20080730
  Receipt Date: 20080429
  Transmission Date: 20090109
  Serious: Yes (Hospitalization)
  Sender: FDA-Public Use
  Company Number: 2008-US-000308

PATIENT
  Age: 4 Year
  Sex: Male
  Weight: 10.9 kg

DRUGS (6)
  1. INCRELEX [Suspect]
     Indication: GROWTH RETARDATION
     Dosage: 4 UNITS, BID, SUBCUTANEOUS ; 8 UNITS, BID, SUBCCUTANEOUS ; 12 UNITS
     Route: 058
     Dates: start: 20071201, end: 20080325
  2. INCRELEX [Suspect]
     Indication: GROWTH RETARDATION
     Dosage: 4 UNITS, BID, SUBCUTANEOUS ; 8 UNITS, BID, SUBCCUTANEOUS ; 12 UNITS
     Route: 058
     Dates: start: 20070321
  3. INCRELEX [Suspect]
     Indication: GROWTH RETARDATION
     Dosage: 4 UNITS, BID, SUBCUTANEOUS ; 8 UNITS, BID, SUBCCUTANEOUS ; 12 UNITS
     Route: 058
     Dates: start: 20071001
  4. SENNA /00142201/ (SENNA ALEXANDRINA) [Concomitant]
  5. LACTULOSE [Concomitant]
  6. PREVACID [Concomitant]

REACTIONS (3)
  - HYPERSENSITIVITY [None]
  - PRURITUS GENERALISED [None]
  - URTICARIA [None]
